FAERS Safety Report 18608976 (Version 3)
Quarter: 2020Q4

REPORT INFORMATION
  Report Type: Spontaneous
  Country: PL (occurrence: PL)
  Receive Date: 20201214
  Receipt Date: 20201231
  Transmission Date: 20210114
  Serious: Yes (Life-Threatening, Hospitalization, Other)
  Sender: FDA-Public Use
  Company Number: PL-AUROBINDO-AUR-APL-2020-060489

PATIENT
  Age: 35 Year
  Sex: Male

DRUGS (6)
  1. AMOXICILLIN+CLAVULANIC ACID [Interacting]
     Active Substance: AMOXICILLIN\CLAVULANIC ACID
     Indication: RESPIRATORY TRACT INFECTION
  2. LAMOTRIGINE. [Suspect]
     Active Substance: LAMOTRIGINE
     Indication: BIPOLAR DISORDER
     Dosage: UNK
     Route: 065
     Dates: start: 201804, end: 201807
  3. NAPROXEN. [Suspect]
     Active Substance: NAPROXEN
     Indication: EPILEPSY
     Dosage: UNK
     Route: 065
     Dates: start: 20180622
  4. SERONIL [Concomitant]
     Active Substance: FLUOXETINE HYDROCHLORIDE
     Indication: BIPOLAR DISORDER
     Dosage: UNK
     Route: 065
  5. LAMOTRIGINE. [Suspect]
     Active Substance: LAMOTRIGINE
     Indication: EPILEPSY
  6. AMOXICILLIN+CLAVULANIC ACID [Suspect]
     Active Substance: AMOXICILLIN\CLAVULANIC ACID
     Indication: EPILEPSY
     Dosage: 3 DOSAGE FORM
     Route: 065
     Dates: start: 20180622

REACTIONS (9)
  - Upper respiratory tract infection [Unknown]
  - Drug interaction [Recovered/Resolved]
  - Haemodynamic instability [Recovered/Resolved]
  - Lymphadenopathy [Unknown]
  - Myalgia [Unknown]
  - Toxic epidermal necrolysis [Recovered/Resolved]
  - Acute respiratory failure [Recovered/Resolved]
  - Oropharyngeal pain [Unknown]
  - Pyrexia [Unknown]

NARRATIVE: CASE EVENT DATE: 201806
